FAERS Safety Report 6120088-X (Version None)
Quarter: 2009Q1

REPORT INFORMATION
  Report Type: 
  Country: None (occurrence: None)
  Receive Date: 20090311
  Receipt Date: 20090303
  Transmission Date: 20090719
  Serious: Yes (Life-Threatening, Hospitalization)
  Sender: FDA-Public Use
  Company Number: GXKR2009DE02684

PATIENT
  Age: 83 Year
  Sex: Male

DRUGS (17)
  1. INSULIN ACTRAPID HUMAN (INSULIN HUMAN) INJECTION [Suspect]
     Dosage: 22-10-20 IU, SUBCUTANEOUS
     Route: 058
  2. ENALAPRIL MALEATE [Suspect]
     Dosage: 10 MG, 2 IN DAY, ORAL
     Route: 048
  3. PROTAPHANE MC (INSULIN INJECTION, ISOPHANE) INJECTION [Suspect]
     Dosage: 20 IU, QD, SUBCUTANEOUS
     Route: 058
  4. ACETYLCYSTEINE [Concomitant]
  5. ALLOPURINOL [Concomitant]
  6. BEROTEC [Concomitant]
  7. DIGITOXIN INJ [Concomitant]
  8. FALICARD ^ASTA MEDICA^ (VERAPAMIL HYDROCHLORIDE) [Concomitant]
  9. FALITHROM ^HEXAL^ (PHENPROCOUMON) [Concomitant]
  10. HYDROCHLOROTHIAZIDE [Concomitant]
  11. L-THYROXINE (LEVOTHYROXINE) [Concomitant]
  12. NOVALGIN /SCH/ (METAMIZOLE SODIUM MONOHYDRATE) [Concomitant]
  13. OXIS TURBUHALER ^ASTRAZENECA^ (FORMOTEROL FUMARATE) [Concomitant]
  14. SIMVASTATIN [Concomitant]
  15. SPIRIVA [Concomitant]
  16. TRAMADOLOR ^HEXAL^ (TRAMADOL HYDROCHLORIDE) [Concomitant]
  17. FURORESE (FUROSEMIDE) [Concomitant]

REACTIONS (2)
  - DRUG INTERACTION [None]
  - HYPOGLYCAEMIA [None]
